FAERS Safety Report 22092644 (Version 1)
Quarter: 2023Q1

REPORT INFORMATION
  Report Type: Other
  Country: CA (occurrence: CA)
  Receive Date: 20230314
  Receipt Date: 20230314
  Transmission Date: 20230417
  Serious: Yes (Other)
  Sender: FDA-Public Use
  Company Number: CA-APOTEX-2023AP004900

PATIENT
  Age: 74 Year
  Sex: Male
  Weight: 83 kg

DRUGS (1)
  1. ROSUVASTATIN [Suspect]
     Active Substance: ROSUVASTATIN
     Indication: Dyslipidaemia
     Dosage: 5 MILLIGRAM, QD
     Route: 048

REACTIONS (3)
  - Peripheral swelling [Recovered/Resolved]
  - Product substitution issue [Recovered/Resolved]
  - Arthralgia [Recovered/Resolved]
